FAERS Safety Report 5177190-9 (Version None)
Quarter: 2006Q4

REPORT INFORMATION
  Report Type: 
  Country: None (occurrence: None)
  Receive Date: 20061218
  Receipt Date: 20061208
  Transmission Date: 20070319
  Serious: Yes (Other)
  Sender: FDA-Public Use
  Company Number: DE-BRISTOL-MYERS SQUIBB COMPANY-13612205

PATIENT
  Sex: Female

DRUGS (4)
  1. DYNACIL [Suspect]
     Indication: MENOPAUSE
     Route: 048
     Dates: start: 19920101, end: 20020101
  2. BETA BLOCKER [Suspect]
     Dates: end: 20020101
  3. HORMONE THERAPY [Suspect]
     Indication: MENOPAUSE
  4. ANESTHESIA [Suspect]

REACTIONS (2)
  - HALLUCINATION [None]
  - NIGHTMARE [None]
